FAERS Safety Report 9646412 (Version 2)
Quarter: 2013Q4

REPORT INFORMATION
  Report Type: Spontaneous
  Country: GB (occurrence: GB)
  Receive Date: 20131025
  Receipt Date: 20131025
  Transmission Date: 20140711
  Serious: Yes (Disabling)
  Sender: FDA-Public Use
  Company Number: PHHY2013GB018205

PATIENT
  Age: 65 Year
  Sex: Female
  Weight: 63.5 kg

DRUGS (1)
  1. CANDESARTAN CILEXETIL [Suspect]
     Dates: start: 200911, end: 201302

REACTIONS (1)
  - Epistaxis [Recovered/Resolved]
